FAERS Safety Report 5381510-X (Version None)
Quarter: 2007Q3

REPORT INFORMATION
  Report Type: 
  Country: None (occurrence: None)
  Receive Date: 20070709
  Receipt Date: 20070702
  Transmission Date: 20080115
  Serious: Yes (Other)
  Sender: FDA-Public Use
  Company Number: PHEH2007US09509

PATIENT
  Age: 62 Year
  Sex: Female

DRUGS (2)
  1. AREDIA [Suspect]
     Indication: OSTEOPOROSIS
     Dates: start: 19991201, end: 20030801
  2. FOSAMAX [Suspect]
     Indication: OSTEOPOROSIS
     Dates: start: 19961201, end: 19991201

REACTIONS (3)
  - ANXIETY [None]
  - OSTEONECROSIS [None]
  - PAIN [None]
